FAERS Safety Report 7687016-7 (Version None)
Quarter: 2011Q3

REPORT INFORMATION
  Report Type: 
  Country: None (occurrence: None)
  Receive Date: 20110816
  Receipt Date: 20110808
  Transmission Date: 20111222
  Serious: Yes (Hospitalization, Other)
  Sender: FDA-Public Use
  Company Number: US-BAYER-2010-001992

PATIENT
  Age: 30 Year
  Sex: Female
  Weight: 97.506 kg

DRUGS (3)
  1. PROPONALOL [Concomitant]
     Indication: HYPERTENSION
     Dosage: UNK
     Dates: start: 20090618, end: 20090918
  2. YAZ [Suspect]
     Indication: ACNE
     Dosage: UNK
     Dates: start: 20090628, end: 20091013
  3. NAPROXEN [Concomitant]

REACTIONS (3)
  - PULMONARY EMBOLISM [None]
  - DEEP VEIN THROMBOSIS [None]
  - PAIN [None]
